FAERS Safety Report 16971405 (Version 1)
Quarter: 2019Q4

REPORT INFORMATION
  Report Type: Spontaneous
  Country: IT (occurrence: IT)
  Receive Date: 20191029
  Receipt Date: 20191029
  Transmission Date: 20200122
  Serious: Yes (Life-Threatening)
  Sender: FDA-Public Use
  Company Number: IT-MYLANLABS-2019M1102844

PATIENT
  Age: 54 Year
  Sex: Female

DRUGS (3)
  1. XANAX [Concomitant]
     Active Substance: ALPRAZOLAM
     Indication: ANXIETY
     Dosage: 1 MILLIGRAM
     Route: 048
  2. CIPROXIN                           /00697201/ [Concomitant]
     Active Substance: CIPROFLOXACIN
     Indication: BACTERIAL INFECTION
     Dosage: UNK
     Route: 048
  3. BRUFEN [Suspect]
     Active Substance: IBUPROFEN
     Indication: HEADACHE
     Dosage: 2400 MILLIGRAM, QD
     Route: 048
     Dates: start: 20090818, end: 20090821

REACTIONS (4)
  - Thrombocytopenia [Recovered/Resolved]
  - Hepatitis acute [Recovered/Resolved]
  - Leukopenia [Recovered/Resolved]
  - Haematemesis [Recovered/Resolved]

NARRATIVE: CASE EVENT DATE: 20090822
